FAERS Safety Report 10039379 (Version 1)
Quarter: 2014Q1

REPORT INFORMATION
  Report Type: Report from Study
  Country: US (occurrence: US)
  Receive Date: 20140326
  Receipt Date: 20140326
  Transmission Date: 20141002
  Serious: Yes (Other)
  Sender: FDA-Public Use
  Company Number: PHEH2014US005712

PATIENT
  Sex: Female
  Weight: 57.6 kg

DRUGS (2)
  1. GILENYA [Suspect]
     Indication: MULTIPLE SCLEROSIS
     Dosage: 0.5 MG, QD
     Route: 048
     Dates: start: 20131022
  2. TYSABRI [Suspect]

REACTIONS (3)
  - Autoimmune disorder [Unknown]
  - Dental caries [Unknown]
  - Tooth loss [Unknown]
